FAERS Safety Report 4498190-8 (Version None)
Quarter: 2004Q4

REPORT INFORMATION
  Report Type: 
  Country: None (occurrence: None)
  Receive Date: 20041110
  Receipt Date: 20041101
  Transmission Date: 20050328
  Serious: Yes (Life-Threatening, Hospitalization, Disabling)
  Sender: FDA-Public Use
  Company Number: US-MERCK-0411USA00202

PATIENT
  Age: 96 Year
  Sex: Female

DRUGS (6)
  1. ISOSORBIDE [Concomitant]
     Route: 065
  2. VIOXX [Suspect]
     Indication: ARTHRITIS
     Route: 048
     Dates: start: 20030101, end: 20041001
  3. DILTIAZEM HYDROCHLORIDE [Concomitant]
     Route: 065
  4. SYNTHROID [Concomitant]
     Route: 065
  5. PROTONIX [Concomitant]
     Route: 065
  6. DIGITEK [Concomitant]
     Route: 065

REACTIONS (1)
  - CHEST PAIN [None]
